FAERS Safety Report 10749221 (Version 2)
Quarter: 2015Q2

REPORT INFORMATION
  Report Type: Spontaneous
  Country: US (occurrence: None)
  Receive Date: 20150120
  Receipt Date: 20150420
  Transmission Date: 20150821
  Serious: No
  Sender: FDA-Public Use
  Company Number: AEGR000768

PATIENT
  Age: 69 Year
  Sex: Male
  Weight: 107 kg

DRUGS (2)
  1. INSULIN (INSULIN PORCINE) [Concomitant]
     Active Substance: INSULIN PORK\INSULIN PURIFIED PORK
  2. JUXTAPID [Suspect]
     Active Substance: LOMITAPIDE MESYLATE
     Indication: TYPE IIA HYPERLIPIDAEMIA
     Dates: start: 20140912, end: 20140922

REACTIONS (5)
  - Pain [None]
  - Inappropriate schedule of drug administration [None]
  - Blood glucose fluctuation [None]
  - Asthenia [None]
  - Abdominal discomfort [None]

NARRATIVE: CASE EVENT DATE: 20140920
